FAERS Safety Report 9345924 (Version 2)
Quarter: 2013Q3

REPORT INFORMATION
  Report Type: Spontaneous
  Country: FR (occurrence: FR)
  Receive Date: 20130613
  Receipt Date: 20130702
  Transmission Date: 20140515
  Serious: Yes (Death, Other)
  Sender: FDA-Public Use
  Company Number: FR-009507513-1306FRA000501

PATIENT
  Age: 74 Year
  Sex: Female

DRUGS (6)
  1. NORSET [Suspect]
     Dosage: 15 MG, TID
     Route: 048
     Dates: start: 201302
  2. SEROQUEL [Suspect]
     Indication: DEPRESSION
     Dosage: 50 MG, QD
     Route: 048
     Dates: start: 201112
  3. SEROQUEL [Suspect]
     Dosage: 400 MG, QD
     Route: 048
  4. SEROQUEL [Suspect]
     Dosage: 300 MG, QD
     Route: 048
     Dates: start: 201212
  5. SEROQUEL [Suspect]
     Dosage: 400 MG, QD
     Route: 048
     Dates: start: 201302
  6. SEROQUEL [Suspect]
     Dosage: 450 MG, QD
     Route: 048
     Dates: start: 201302

REACTIONS (2)
  - Cardio-respiratory arrest [Fatal]
  - Dyspnoea [Unknown]
